FAERS Safety Report 4911538-2 (Version None)
Quarter: 2006Q1

REPORT INFORMATION
  Report Type: 
  Country: None (occurrence: None)
  Receive Date: 20060213
  Receipt Date: 20060201
  Transmission Date: 20060701
  Serious: Yes (Hospitalization, Other)
  Sender: FDA-Public Use
  Company Number: 2005088162

PATIENT
  Age: 59 Year
  Sex: Female

DRUGS (15)
  1. CELEBREX [Suspect]
     Indication: ILL-DEFINED DISORDER
     Dates: start: 19990101
  2. TOPROL-XL [Concomitant]
  3. PLAVIX [Concomitant]
  4. LASIX [Concomitant]
  5. TEGRETOL [Concomitant]
  6. TOPAMAX [Concomitant]
  7. LISINOPRIL [Concomitant]
  8. METFORMIN HCL [Concomitant]
  9. LIPITOR [Concomitant]
  10. ACIPHEX [Concomitant]
  11. MAXAIR [Concomitant]
  12. MAXAIR [Concomitant]
  13. ULTRACET [Concomitant]
  14. ZYRTEC [Concomitant]
  15. ST. JOHN'S WORT (ST. JOHN'S WORT) [Concomitant]

REACTIONS (5)
  - ACUTE CORONARY SYNDROME [None]
  - CORONARY ARTERY DISEASE [None]
  - CORONARY ARTERY STENOSIS [None]
  - MYOCARDIAL INFARCTION [None]
  - THROMBOSIS [None]
